FAERS Safety Report 6275119-3 (Version None)
Quarter: 2009Q3

REPORT INFORMATION
  Report Type: 
  Country: None (occurrence: None)
  Receive Date: 20090721
  Receipt Date: 20090710
  Transmission Date: 20100115
  Serious: Yes (Hospitalization)
  Sender: FDA-Public Use
  Company Number: PHHY2009GB29506

PATIENT

DRUGS (5)
  1. EXJADE [Suspect]
     Indication: MYELODYSPLASTIC SYNDROME
     Dosage: 1500 MG DAILY
     Route: 048
     Dates: start: 20090126
  2. EXJADE [Suspect]
     Indication: IRON OVERLOAD
  3. FINASTERIDE [Concomitant]
     Dosage: 5 MG DAILY
     Route: 048
  4. LEVOTHYROXINE SODIUM [Concomitant]
     Dosage: 175 MCG DAILY
     Route: 048
  5. DILTIAZEM [Concomitant]
     Dosage: 120 MG DAILY
     Route: 048

REACTIONS (5)
  - ABDOMINAL PAIN [None]
  - CONSTIPATION [None]
  - FATIGUE [None]
  - NAUSEA [None]
  - VOMITING [None]
